FAERS Safety Report 14902396 (Version 1)
Quarter: 2018Q2

REPORT INFORMATION
  Report Type: Spontaneous
  Country: US (occurrence: US)
  Receive Date: 20180516
  Receipt Date: 20180516
  Transmission Date: 20180711
  Serious: Yes (Other)
  Sender: FDA-Public Use
  Company Number: US-TEVA-2018-US-892541

PATIENT
  Age: 55 Year
  Sex: Male

DRUGS (3)
  1. DOXORUBICIN [Suspect]
     Active Substance: DOXORUBICIN
     Indication: ANAPLASTIC THYROID CANCER
     Dosage: 60 MG/M SQUARE
     Route: 042
  2. PEGYLATED FILGRASTIM [Concomitant]
     Dosage: 6MG; ADMINISTERED GREATER THAN 24 HOURS AFTER COMPLETION OF CHEMOTHERAPY
     Route: 058
  3. DOCETAXEL. [Suspect]
     Active Substance: DOCETAXEL
     Indication: ANAPLASTIC THYROID CANCER
     Dosage: 60 MG/M SQUARE
     Route: 042

REACTIONS (3)
  - Cystitis haemorrhagic [Unknown]
  - Pneumonitis [Recovered/Resolved]
  - Failure to thrive [Recovered/Resolved]
